FAERS Safety Report 6237121-7 (Version None)
Quarter: 2009Q2

REPORT INFORMATION
  Report Type: 
  Country: None (occurrence: None)
  Receive Date: 20090619
  Receipt Date: 20090605
  Transmission Date: 20091009
  Serious: No
  Sender: FDA-Public Use
  Company Number: US-ASTRAZENECA-2009UW09665

PATIENT
  Age: 45 Year
  Sex: Male

DRUGS (1)
  1. SYMBICORT [Suspect]
     Indication: ASTHMA
     Dosage: 640/ 2 PUFFS
     Route: 055

REACTIONS (2)
  - DYSPHONIA [None]
  - PRODUCT QUALITY ISSUE [None]
